FAERS Safety Report 17894436 (Version 2)
Quarter: 2020Q2

REPORT INFORMATION
  Report Type: Spontaneous
  Country: US (occurrence: US)
  Receive Date: 20200615
  Receipt Date: 20200619
  Transmission Date: 20200714
  Serious: Yes (Hospitalization, Other)
  Sender: FDA-Public Use
  Company Number: US-B.I. PHARMACEUTICALS,INC./RIDGEFIELD-2020-US-029075

PATIENT
  Age: 77 Year
  Sex: Female

DRUGS (4)
  1. GILOTRIF [Suspect]
     Active Substance: AFATINIB
     Dosage: 60MG ONCE A DAY
     Route: 065
  2. GILOTRIF [Suspect]
     Active Substance: AFATINIB
     Indication: LUNG NEOPLASM MALIGNANT
     Dosage: 30MG QD
     Route: 065
     Dates: start: 202001, end: 202004
  3. GILOTRIF [Suspect]
     Active Substance: AFATINIB
     Dosage: 40MG 1 TABLET QD FOR 2 DAYS THEN ON THIRD DAY TAKE 1/2 TABLET
     Route: 065
     Dates: start: 202005
  4. GILOTRIF [Suspect]
     Active Substance: AFATINIB
     Dosage: 40MG QD THEN SKIP ON THIRD DAY
     Route: 065
     Dates: start: 202004, end: 202005

REACTIONS (5)
  - Hip fracture [Unknown]
  - Fall [Recovered/Resolved]
  - Malignant neoplasm progression [Not Recovered/Not Resolved]
  - Diarrhoea [Not Recovered/Not Resolved]
  - Off label use [Unknown]

NARRATIVE: CASE EVENT DATE: 202001
